FAERS Safety Report 21664620 (Version 1)
Quarter: 2022Q4

REPORT INFORMATION
  Report Type: Spontaneous
  Country: GB (occurrence: GB)
  Receive Date: 20221130
  Receipt Date: 20221130
  Transmission Date: 20230112
  Serious: Yes (Disabling, Other)
  Sender: FDA-Public Use
  Company Number: None

PATIENT
  Age: 66 Year
  Sex: Female
  Weight: 85 kg

DRUGS (10)
  1. INVOKANA [Suspect]
     Active Substance: CANAGLIFLOZIN
     Indication: Type 2 diabetes mellitus
     Route: 048
     Dates: start: 20220310
  2. ASPIRIN [Concomitant]
     Active Substance: ASPIRIN
     Dates: start: 20220217
  3. BISOPROLOL [Concomitant]
     Active Substance: BISOPROLOL
     Dates: start: 20220217
  4. FOLIC ACID [Concomitant]
     Active Substance: FOLIC ACID
     Dates: start: 20210616
  5. GLICLAZIDE [Concomitant]
     Active Substance: GLICLAZIDE
     Indication: Type 2 diabetes mellitus
     Dosage: WITH BREAKFAST AND WITH EVENING MEAL
     Dates: start: 20220217
  6. GLUCOPHAGE [Concomitant]
     Active Substance: METFORMIN HYDROCHLORIDE
     Indication: Type 2 diabetes mellitus
     Dates: start: 20220217
  7. LOPERAMIDE [Concomitant]
     Active Substance: LOPERAMIDE
     Dosage: 1-3 DAILY TO  MANAGE SYMPTOMS
     Dates: start: 20220217
  8. LOSARTAN [Concomitant]
     Active Substance: LOSARTAN
     Dates: start: 20220217
  9. OMEPRAZOLE [Concomitant]
     Active Substance: OMEPRAZOLE
     Dates: start: 20220217
  10. PRAVASTATIN [Concomitant]
     Active Substance: PRAVASTATIN
     Indication: Blood cholesterol increased
     Dosage: AT NIGHT
     Dates: start: 20220217

REACTIONS (3)
  - Polyuria [Recovered/Resolved]
  - Depressed mood [Recovered/Resolved]
  - Off label use [Unknown]

NARRATIVE: CASE EVENT DATE: 20220310
